FAERS Safety Report 14738170 (Version 1)
Quarter: 2018Q2

REPORT INFORMATION
  Report Type: Report from Study
  Country: GB (occurrence: US)
  Receive Date: 20180409
  Receipt Date: 20180409
  Transmission Date: 20180711
  Serious: Yes (Death)
  Sender: FDA-Public Use
  Company Number: GB-BAYER-2018-064161

PATIENT
  Sex: Male

DRUGS (2)
  1. AVELOX [Suspect]
     Active Substance: MOXIFLOXACIN HYDROCHLORIDE
     Indication: PNEUMONIA
     Dosage: 400 MG, QD
  2. AVELOX [Suspect]
     Active Substance: MOXIFLOXACIN HYDROCHLORIDE
     Indication: UROSEPSIS

REACTIONS (8)
  - Infection [Fatal]
  - Confusional state [Fatal]
  - Pulse absent [Fatal]
  - Coronary artery disease [Fatal]
  - Treatment noncompliance [Fatal]
  - Torsade de pointes [Fatal]
  - Cardiac arrest [Fatal]
  - Arrhythmia [Fatal]
